FAERS Safety Report 8123177-3 (Version None)
Quarter: 2012Q1

REPORT INFORMATION
  Report Type: 
  Country: None (occurrence: None)
  Receive Date: 20120208
  Receipt Date: 20120201
  Transmission Date: 20120608
  Serious: Yes (Hospitalization)
  Sender: FDA-Public Use
  Company Number: IE-MEDIMMUNE-MEDI-0014349

PATIENT
  Sex: Male
  Weight: 2.84 kg

DRUGS (4)
  1. SYNAGIS [Suspect]
     Route: 030
     Dates: start: 20111129, end: 20111129
  2. SYNAGIS [Suspect]
     Route: 030
     Dates: start: 20111228
  3. KAPSOVIT [Concomitant]
  4. FERROUS SULFATE TAB [Concomitant]

REACTIONS (1)
  - HERNIA [None]
